FAERS Safety Report 25741860 (Version 1)
Quarter: 2025Q3

REPORT INFORMATION
  Report Type: Spontaneous
  Country: CN (occurrence: CN)
  Receive Date: 20250829
  Receipt Date: 20250829
  Transmission Date: 20251021
  Serious: Yes (Other)
  Sender: PARATEK PHARMACEUTICALS
  Company Number: CN-PARATEK PHARMACEUTICALS, INC.-2025PTK01119

PATIENT
  Age: 54 Year
  Sex: Male

DRUGS (5)
  1. NUZYRA [Suspect]
     Active Substance: OMADACYCLINE
     Indication: Mycoplasma infection
     Dosage: 200 MG, QD
     Route: 065
     Dates: start: 20250813, end: 20250813
  2. NUZYRA [Suspect]
     Active Substance: OMADACYCLINE
     Dosage: 100 MG, QD
     Route: 065
     Dates: start: 20250814, end: 20250820
  3. BUDESONIDE [Concomitant]
     Active Substance: BUDESONIDE
  4. AMBROXOL HYDROCHLORIDE [Concomitant]
     Active Substance: AMBROXOL HYDROCHLORIDE
  5. PHOSPHOLIPID [Concomitant]
     Active Substance: PHOSPHOLIPID

REACTIONS (10)
  - Fibrin D dimer increased [Unknown]
  - Fibrin degradation products increased [Unknown]
  - Activated partial thromboplastin time prolonged [Unknown]
  - Condition aggravated [Unknown]
  - Protein total decreased [Unknown]
  - Blood albumin decreased [Unknown]
  - Alanine aminotransferase increased [Unknown]
  - Aspartate aminotransferase increased [Unknown]
  - Blood alkaline phosphatase increased [Unknown]
  - Glutamate dehydrogenase increased [Unknown]

NARRATIVE: CASE EVENT DATE: 20250819
